FAERS Safety Report 6319196-X (Version None)
Quarter: 2009Q3

REPORT INFORMATION
  Report Type: 
  Country: None (occurrence: None)
  Receive Date: 20090821
  Receipt Date: 20080827
  Transmission Date: 20100115
  Serious: No
  Sender: FDA-Public Use
  Company Number: US-ABBOTT-08P-163-0470578-00

PATIENT
  Sex: Female

DRUGS (2)
  1. NIASPAN [Suspect]
     Indication: BLOOD CHOLESTEROL INCREASED
     Dates: end: 20080811
  2. IBUPROFEN [Concomitant]
     Indication: DRUG USE FOR UNKNOWN INDICATION

REACTIONS (2)
  - ARTHRALGIA [None]
  - FLUSHING [None]
